FAERS Safety Report 6995951-8 (Version None)
Quarter: 2010Q3

REPORT INFORMATION
  Report Type: 
  Country: None (occurrence: None)
  Receive Date: 20100918
  Receipt Date: 20081202
  Transmission Date: 20110219
  Serious: No
  Sender: FDA-Public Use
  Company Number: US-WYE-H07047208

PATIENT
  Sex: Female

DRUGS (5)
  1. EFFEXOR XR [Suspect]
     Indication: BIPOLAR DISORDER
     Route: 048
     Dates: start: 20040101
  2. EFFEXOR XR [Suspect]
     Route: 048
  3. EFFEXOR XR [Suspect]
     Dosage: DISCONTINUED ABRUPTLY
     Route: 048
  4. EFFEXOR XR [Suspect]
     Dosage: RESUMED, THEN TAPERED SEVERAL TIMES IN ATTEMPTS TO DISCONTINUE EFFEXOR XR
     Route: 048
  5. LAMICTAL [Concomitant]

REACTIONS (5)
  - ANGER [None]
  - CHILLS [None]
  - DRUG WITHDRAWAL SYNDROME [None]
  - MANIA [None]
  - NAUSEA [None]
